FAERS Safety Report 18665534 (Version 1)
Quarter: 2020Q4

REPORT INFORMATION
  Report Type: Spontaneous
  Country: CA (occurrence: CA)
  Receive Date: 20201226
  Receipt Date: 20201226
  Transmission Date: 20210114
  Serious: Yes (Hospitalization, Other)
  Sender: FDA-Public Use
  Company Number: CA-LUPIN PHARMACEUTICALS INC.-2020-09188

PATIENT
  Age: 60 Year
  Sex: Male

DRUGS (6)
  1. LORAZEPAM. [Suspect]
     Active Substance: LORAZEPAM
     Dosage: UNK (RESTARTED AND SUCCESSFULLY COMPLETED A TAPER)
     Route: 065
  2. HYDROMORPHONE [Suspect]
     Active Substance: HYDROMORPHONE
     Indication: PRODUCT USED FOR UNKNOWN INDICATION
     Dosage: UNK (RAPIDLY ESCALATING DOSES FOR A TWO-WEEK PERIOD) (SUSTAINED-RELEASE)
     Route: 048
  3. DIPHENHYDRAMINE. [Concomitant]
     Active Substance: DIPHENHYDRAMINE
     Indication: ANXIOLYTIC THERAPY
     Dosage: UNK (500MG OR MORE AT NIGHT FOR MORE THAN 10 YEARS)
     Route: 065
  4. LORAZEPAM. [Suspect]
     Active Substance: LORAZEPAM
     Indication: PRODUCT USED FOR UNKNOWN INDICATION
     Dosage: UNK (ABRUPT DISCONTINUATION)
     Route: 065
  5. LOXAPINE. [Concomitant]
     Active Substance: LOXAPINE
     Indication: AGITATION
     Dosage: 25 MILLIGRAM, TID
     Route: 058
  6. LOXAPINE. [Concomitant]
     Active Substance: LOXAPINE
     Indication: DELIRIUM
     Dosage: 12.5 MILLIGRAM, PRN (EVERY 2 HOURS)
     Route: 058

REACTIONS (6)
  - Drug withdrawal syndrome [Recovered/Resolved]
  - Seizure [Recovered/Resolved]
  - Sedation [Recovering/Resolving]
  - Confusional state [Recovering/Resolving]
  - Toxicity to various agents [Unknown]
  - Myoclonus [Recovering/Resolving]
